FAERS Safety Report 10946105 (Version 3)
Quarter: 2015Q3

REPORT INFORMATION
  Report Type: Spontaneous
  Country: US (occurrence: US)
  Receive Date: 20150323
  Receipt Date: 20150908
  Transmission Date: 20151125
  Serious: Yes (Life-Threatening, Hospitalization, Other)
  Sender: FDA-Public Use
  Company Number: US-BAYER-2015-045425

PATIENT
  Age: 22 Year
  Sex: Female

DRUGS (2)
  1. DOXYCYCLINE. [Concomitant]
     Active Substance: DOXYCYCLINE
  2. MIRENA [Suspect]
     Active Substance: LEVONORGESTREL
     Indication: CONTRACEPTION
     Dosage: 20 MCG/24HR, CONT
     Route: 015
     Dates: start: 20091102, end: 20121211

REACTIONS (8)
  - Drug ineffective [None]
  - Infection [None]
  - Injury [None]
  - Uterine perforation [None]
  - General physical health deterioration [None]
  - Device dislocation [None]
  - Pregnancy with contraceptive device [None]
  - Abdominal pain [None]

NARRATIVE: CASE EVENT DATE: 2012
